FAERS Safety Report 13264497 (Version 1)
Quarter: 2017Q1

REPORT INFORMATION
  Report Type: Spontaneous
  Country: US (occurrence: US)
  Receive Date: 20170222
  Receipt Date: 20170222
  Transmission Date: 20170428
  Serious: Yes (Hospitalization)
  Sender: FDA-Public Use
  Company Number: None

PATIENT
  Age: 73 Year
  Sex: Male
  Weight: 86.6 kg

DRUGS (2)
  1. WARFARIN [Suspect]
     Active Substance: WARFARIN
     Indication: ATRIAL FIBRILLATION
     Dates: start: 20030101, end: 20161128
  2. ASPIRIN. [Suspect]
     Active Substance: ASPIRIN
     Route: 048
     Dates: start: 20050211, end: 20161229

REACTIONS (14)
  - Haemorrhage [None]
  - Splenic infarction [None]
  - Adrenal insufficiency [None]
  - Hypogonadism [None]
  - Anaemia [None]
  - Splenic haematoma [None]
  - Supraventricular tachycardia [None]
  - Leukocytosis [None]
  - International normalised ratio increased [None]
  - Bradycardia [None]
  - Transaminases increased [None]
  - Acute kidney injury [None]
  - Thrombocytopenia [None]
  - Hypopituitarism [None]

NARRATIVE: CASE EVENT DATE: 20161130
